FAERS Safety Report 17031557 (Version 1)
Quarter: 2019Q4

REPORT INFORMATION
  Report Type: Spontaneous
  Country: US (occurrence: US)
  Receive Date: 20191114
  Receipt Date: 20191114
  Transmission Date: 20200122
  Serious: No
  Sender: FDA-Public Use
  Company Number: US-PFIZER INC-2019488808

PATIENT
  Age: 85 Year
  Sex: Female

DRUGS (2)
  1. ELECTROSOL [Concomitant]
     Dosage: 25 MG, DAILY
  2. IBRANCE [Suspect]
     Active Substance: PALBOCICLIB
     Indication: BREAST CANCER FEMALE
     Dosage: 75 MG, CYCLIC (3 WEEKS ON AND 1 WEEK OFF)
     Dates: start: 20161220

REACTIONS (1)
  - Fatigue [Unknown]
